FAERS Safety Report 14004390 (Version 1)
Quarter: 2017Q3

REPORT INFORMATION
  Report Type: Spontaneous
  Country: US (occurrence: US)
  Receive Date: 20170922
  Receipt Date: 20170922
  Transmission Date: 20171128
  Serious: Yes (Other)
  Sender: FDA-Public Use
  Company Number: US-JNJFOC-20170808664

PATIENT
  Age: 67 Year
  Sex: Female

DRUGS (2)
  1. METFORMIN [Concomitant]
     Active Substance: METFORMIN HYDROCHLORIDE
     Dosage: START DATE: JAN-YEAR UNSPECIFIED
     Route: 065
     Dates: end: 201704
  2. INVOKANA [Suspect]
     Active Substance: CANAGLIFLOZIN
     Indication: PRODUCT USED FOR UNKNOWN INDICATION
     Dosage: START DATE: JAN YEAR UNSPECIFIED
     Route: 065
     Dates: end: 201704

REACTIONS (2)
  - Genital infection fungal [Unknown]
  - Urinary tract infection [Recovered/Resolved]
